FAERS Safety Report 8274461-4 (Version None)
Quarter: 2012Q2

REPORT INFORMATION
  Report Type: 
  Country: None (occurrence: None)
  Receive Date: 20120411
  Receipt Date: 20120410
  Transmission Date: 20120825
  Serious: Yes (Hospitalization)
  Sender: FDA-Public Use
  Company Number: PHEH1994US02285

PATIENT
  Sex: Female
  Weight: 59.7 kg

DRUGS (35)
  1. MYCELEX [Concomitant]
     Route: 048
     Dates: start: 19930404, end: 19930720
  2. PREDNISONE TAB [Concomitant]
     Route: 048
     Dates: start: 19930414, end: 19930420
  3. PREDNISONE TAB [Concomitant]
     Route: 048
     Dates: start: 19930421, end: 19930401
  4. PREDNISONE TAB [Concomitant]
     Route: 048
     Dates: start: 19930602, end: 19930608
  5. NEUTRA-PHOS-K [Concomitant]
     Route: 048
     Dates: start: 19930405, end: 19930408
  6. ASCORBIC ACID [Concomitant]
     Route: 048
     Dates: start: 19931001
  7. CLOXACILLIN (OG) [Concomitant]
     Route: 048
     Dates: start: 19930405, end: 19930405
  8. PRIMAXIN [Concomitant]
     Route: 042
     Dates: start: 19930405, end: 19930410
  9. LASIX [Concomitant]
     Route: 048
     Dates: start: 19930807
  10. NEORAL [Suspect]
     Route: 048
     Dates: start: 19930406
  11. TRENTAL [Concomitant]
     Route: 048
     Dates: start: 19930402, end: 19930405
  12. FERROUS SULFATE TAB [Concomitant]
     Route: 048
     Dates: start: 19930405, end: 19930817
  13. AMPHOGEL (ALUMINIUM HYDROXIDE GEL) [Concomitant]
     Route: 048
     Dates: start: 19930410, end: 19930410
  14. NAFCILLIN [Concomitant]
     Route: 042
     Dates: start: 19930402, end: 19930409
  15. K-PHOS NEUTRAL [Concomitant]
     Route: 048
     Dates: start: 19930409, end: 19930412
  16. LASIX [Concomitant]
     Route: 048
     Dates: start: 19930417
  17. PREDNISONE TAB [Concomitant]
     Route: 048
     Dates: start: 19930501, end: 19930514
  18. PREDNISONE TAB [Concomitant]
     Route: 048
     Dates: start: 19930609
  19. PEN V-K (PHENOXYMETHYLPENICILLIN) [Concomitant]
     Route: 048
     Dates: start: 19931102, end: 19931112
  20. BENADRYL [Concomitant]
     Route: 048
     Dates: start: 19930407, end: 19930505
  21. DARVOCET N-100 (DI-GESIC) [Concomitant]
     Route: 048
     Dates: start: 19930404
  22. FERROUS SULFATE TAB [Concomitant]
     Route: 048
     Dates: start: 19930818, end: 19940317
  23. PREDNISONE TAB [Concomitant]
     Route: 048
     Dates: start: 19930410, end: 19930413
  24. LASIX [Concomitant]
     Route: 048
     Dates: start: 19930412, end: 19930416
  25. IMURAN [Concomitant]
     Route: 048
     Dates: start: 19940202
  26. ACETAMINOPHEN [Concomitant]
     Route: 048
     Dates: start: 19930401, end: 19930408
  27. GANCYCLOVIR (GANCICLOVIR) [Concomitant]
     Route: 042
     Dates: start: 19930402, end: 19930412
  28. ZANTAC [Concomitant]
     Route: 048
     Dates: start: 19930405
  29. PREDNISONE TAB [Concomitant]
     Route: 048
     Dates: start: 19930515, end: 19930601
  30. BUPRENEX (BUPRENORPHINE HYDROCHLORIDE) [Concomitant]
     Route: 030
     Dates: start: 19930404, end: 19930407
  31. ORTHOCLONE (MUROMONAB-CD3) [Concomitant]
     Route: 042
     Dates: start: 19930402, end: 19930408
  32. SEPTRA DS [Concomitant]
     Route: 048
     Dates: start: 19930401, end: 19930720
  33. SYNTHROID [Concomitant]
     Route: 048
     Dates: start: 19930402
  34. GANCYCLOVIR (GANCICLOVIR) [Concomitant]
     Route: 042
     Dates: start: 19930402, end: 19930412
  35. ACYCLOVIR [Concomitant]
     Route: 048
     Dates: start: 19930412, end: 19930720

REACTIONS (1)
  - SURGERY [None]
